FAERS Safety Report 20612726 (Version 3)
Quarter: 2023Q1

REPORT INFORMATION
  Report Type: Spontaneous
  Country: US (occurrence: US)
  Receive Date: 20220318
  Receipt Date: 20230323
  Transmission Date: 20230417
  Serious: No
  Sender: FDA-Public Use
  Company Number: US-PFIZER INC-202100976385

PATIENT
  Age: 52 Year
  Sex: Female

DRUGS (1)
  1. XELJANZ XR [Suspect]
     Active Substance: TOFACITINIB CITRATE
     Dosage: 11 MG
     Dates: start: 20210629, end: 20210729

REACTIONS (3)
  - Illness [Unknown]
  - Urinary tract infection [Unknown]
  - Cystitis [Unknown]

NARRATIVE: CASE EVENT DATE: 20210101
